FAERS Safety Report 9714436 (Version 1)
Quarter: 2013Q4

REPORT INFORMATION
  Report Type: Spontaneous
  Country: US (occurrence: US)
  Receive Date: 20131126
  Receipt Date: 20131126
  Transmission Date: 20140711
  Serious: No
  Sender: FDA-Public Use
  Company Number: US-BIOGENIDEC-2013BI078359

PATIENT
  Age: 21 Year
  Sex: Female

DRUGS (6)
  1. TECFIDERA [Suspect]
     Indication: MULTIPLE SCLEROSIS
     Route: 048
     Dates: start: 20130802
  2. TECFIDERA [Suspect]
     Indication: MULTIPLE SCLEROSIS
     Route: 048
     Dates: start: 201307
  3. CHILDREN^S MULTIVITAMIN GUMMIES [Concomitant]
  4. MICROGESTIN FE 1-20 TAB [Concomitant]
  5. IBUPROFEN [Concomitant]
  6. VITAMIN D3 5,000 UNIT SFGL [Concomitant]

REACTIONS (4)
  - Flushing [Unknown]
  - Pruritus [Unknown]
  - Erythema [Unknown]
  - Burning sensation [Unknown]
